FAERS Safety Report 14568648 (Version 1)
Quarter: 2018Q1

REPORT INFORMATION
  Report Type: Spontaneous
  Country: US (occurrence: US)
  Receive Date: 20180223
  Receipt Date: 20180223
  Transmission Date: 20180509
  Serious: Yes (Other)
  Sender: FDA-Public Use
  Company Number: US-009507513-1802USA009224

PATIENT
  Sex: Female
  Weight: 87.98 kg

DRUGS (1)
  1. IMPLANON [Suspect]
     Active Substance: ETONOGESTREL
     Indication: CONTRACEPTION
     Dosage: 1 ROD (68MG) EVERY 3 YEARS
     Route: 059
     Dates: start: 2011

REACTIONS (7)
  - General anaesthesia [Unknown]
  - Device dislocation [Not Recovered/Not Resolved]
  - Incorrect drug administration duration [Unknown]
  - Device difficult to use [Not Recovered/Not Resolved]
  - Vaginal haemorrhage [Recovering/Resolving]
  - Complication associated with device [Not Recovered/Not Resolved]
  - Fibrosis [Unknown]

NARRATIVE: CASE EVENT DATE: 2011
